FAERS Safety Report 19261830 (Version 1)
Quarter: 2021Q2

REPORT INFORMATION
  Report Type: Spontaneous
  Country: AU (occurrence: AU)
  Receive Date: 20210515
  Receipt Date: 20210515
  Transmission Date: 20210717
  Serious: Yes (Hospitalization, Other)
  Sender: FDA-Public Use
  Company Number: NVSC2021AU101579

PATIENT
  Age: 63 Year
  Sex: Female

DRUGS (4)
  1. TEGRETOL [Suspect]
     Active Substance: CARBAMAZEPINE
     Dosage: 1 DF, QD
     Route: 065
     Dates: end: 20210425
  2. TEGRETOL [Suspect]
     Active Substance: CARBAMAZEPINE
     Indication: VERTIGO
     Dosage: UNK
     Route: 065
  3. TEGRETOL [Suspect]
     Active Substance: CARBAMAZEPINE
     Dosage: 0.5 DF
     Route: 065
  4. TEGRETOL [Suspect]
     Active Substance: CARBAMAZEPINE
     Dosage: 1 DF
     Route: 048
     Dates: start: 20210314

REACTIONS (14)
  - Product use in unapproved indication [Unknown]
  - Renal haemorrhage [Unknown]
  - Inflammatory marker increased [Unknown]
  - Urticaria [Unknown]
  - Chromaturia [Unknown]
  - Anaemia [Unknown]
  - Hepatic haemorrhage [Unknown]
  - Feeding disorder [Unknown]
  - Hepatic enzyme increased [Unknown]
  - Nausea [Unknown]
  - Headache [Unknown]
  - Illness [Unknown]
  - Malaise [Unknown]
  - Vision blurred [Unknown]

NARRATIVE: CASE EVENT DATE: 20210426
